FAERS Safety Report 5580193-3 (Version None)
Quarter: 2007Q4

REPORT INFORMATION
  Report Type: 
  Country: None (occurrence: None)
  Receive Date: 20071227
  Receipt Date: 20071227
  Transmission Date: 20080405
  Serious: Yes (Life-Threatening)
  Sender: FDA-Public Use
  Company Number: None

PATIENT
  Age: 35 Year
  Sex: Female
  Weight: 58.9676 kg

DRUGS (1)
  1. CHANTIX [Suspect]
     Indication: SMOKER
     Dosage: 5MG QDAY PO
     Route: 048
     Dates: start: 20071001, end: 20071005

REACTIONS (4)
  - CRYING [None]
  - IMPAIRED WORK ABILITY [None]
  - PSYCHOTIC DISORDER [None]
  - SUICIDAL IDEATION [None]
